FAERS Safety Report 8436539-1 (Version None)
Quarter: 2012Q2

REPORT INFORMATION
  Report Type: 
  Country: None (occurrence: None)
  Receive Date: 20120614
  Receipt Date: 20120607
  Transmission Date: 20120825
  Serious: Yes (Other)
  Sender: FDA-Public Use
  Company Number: JP-GLAXOSMITHKLINE-B0807960A

PATIENT
  Age: 77 Year
  Sex: Female

DRUGS (1)
  1. HYCAMTIN [Suspect]
     Indication: MALIGNANT PERITONEAL NEOPLASM
     Dosage: 1.2MGM2 PER DAY
     Route: 042
     Dates: start: 20120507, end: 20120511

REACTIONS (2)
  - DIARRHOEA [None]
  - BLOOD SODIUM DECREASED [None]
